FAERS Safety Report 6578808-6 (Version None)
Quarter: 2010Q1

REPORT INFORMATION
  Report Type: 
  Country: None (occurrence: None)
  Receive Date: 20100202
  Receipt Date: 20100122
  Transmission Date: 20100710
  Serious: Yes (Hospitalization)
  Sender: FDA-Public Use
  Company Number: VISP-NO-1001S-0036

PATIENT
  Age: 79 Year
  Sex: Female

DRUGS (1)
  1. VISIPAQUE [Suspect]
     Indication: ARTERIOVENOUS FISTULA OCCLUSION
     Dosage: SINGLE DOSE, I.V.
     Route: 042
     Dates: start: 20091123, end: 20091123

REACTIONS (2)
  - PYREXIA [None]
  - TOXIC SKIN ERUPTION [None]
